FAERS Safety Report 13786754 (Version 1)
Quarter: 2017Q3

REPORT INFORMATION
  Report Type: Spontaneous
  Country: US (occurrence: US)
  Receive Date: 20170725
  Receipt Date: 20170725
  Transmission Date: 20171127
  Serious: No
  Sender: FDA-Public Use
  Company Number: US-JNJFOC-20170618554

PATIENT
  Age: 11 Year
  Sex: Female
  Weight: 34.02 kg

DRUGS (2)
  1. TYLENOL REGULAR STRENGTH [Suspect]
     Active Substance: ACETAMINOPHEN
     Indication: PYREXIA
     Route: 048
     Dates: start: 20170618, end: 20170618
  2. TYLENOL REGULAR STRENGTH [Suspect]
     Active Substance: ACETAMINOPHEN
     Indication: HEADACHE
     Route: 048
     Dates: start: 20170618, end: 20170618

REACTIONS (3)
  - Foreign body in respiratory tract [Recovered/Resolved]
  - Product quality issue [Unknown]
  - Product size issue [Unknown]

NARRATIVE: CASE EVENT DATE: 20170618
